FAERS Safety Report 12895808 (Version 1)
Quarter: 2016Q4

REPORT INFORMATION
  Report Type: Spontaneous
  Country: US (occurrence: US)
  Receive Date: 20161031
  Receipt Date: 20161031
  Transmission Date: 20170207
  Serious: No
  Sender: FDA-Public Use
  Company Number: US-009507513-1610USA016599

PATIENT
  Sex: Male

DRUGS (1)
  1. MEVACOR [Suspect]
     Active Substance: LOVASTATIN
     Route: 048

REACTIONS (7)
  - Arthralgia [Unknown]
  - Abdominal pain upper [Unknown]
  - Muscular weakness [Unknown]
  - Nausea [Unknown]
  - Malaise [Unknown]
  - Myalgia [Unknown]
  - Drug hypersensitivity [Unknown]
